FAERS Safety Report 19942766 (Version 1)
Quarter: 2021Q4

REPORT INFORMATION
  Report Type: Spontaneous
  Country: US (occurrence: US)
  Receive Date: 20211012
  Receipt Date: 20211012
  Transmission Date: 20220303
  Serious: Yes (Life-Threatening, Hospitalization, Other)
  Sender: FDA-Public Use
  Company Number: US-LUPIN PHARMACEUTICALS INC.-2021-19107

PATIENT
  Age: 8 Year
  Sex: Female

DRUGS (11)
  1. VANCOMYCIN [Suspect]
     Active Substance: VANCOMYCIN
     Indication: Prophylaxis
     Dosage: UNK
     Route: 042
  2. VANCOMYCIN [Suspect]
     Active Substance: VANCOMYCIN
     Dosage: UNK (POWDER)
     Route: 048
  3. MIDAZOLAM [Concomitant]
     Active Substance: MIDAZOLAM
     Indication: Anxiolytic therapy
     Dosage: UNK
     Route: 048
  4. NITROUS OXIDE [Concomitant]
     Active Substance: NITROUS OXIDE
     Indication: Anaesthesia
     Dosage: UNK
     Route: 065
  5. SEVOFLURANE [Concomitant]
     Active Substance: SEVOFLURANE
     Indication: Anaesthesia
     Route: 065
  6. FENTANYL [Concomitant]
     Active Substance: FENTANYL
     Indication: Sedation
     Dosage: UNK
     Route: 042
  7. PROPOFOL [Concomitant]
     Active Substance: PROPOFOL
     Indication: Sedation
     Dosage: IV PROPOFOL BOLUS (MIXED WITH LIDOCAINE)
     Route: 042
  8. PROPOFOL [Concomitant]
     Active Substance: PROPOFOL
     Dosage: CONTINUOUS INFUSION
     Route: 042
  9. LIDOCAINE [Concomitant]
     Active Substance: LIDOCAINE
     Indication: Sedation
     Dosage: INTRAVENOUS PROPOFOL BOLUS (MIXED WITH LIDOCAINE)
     Route: 042
  10. LIDOCAINE [Concomitant]
     Active Substance: LIDOCAINE
     Indication: Endotracheal intubation
     Dosage: UNK (LIDOCAINE 2%)
     Route: 042
  11. REMIFENTANIL [Concomitant]
     Active Substance: REMIFENTANIL
     Indication: Sedation
     Dosage: UNK
     Route: 042

REACTIONS (5)
  - Anaphylactic reaction [Recovered/Resolved]
  - Cardiac arrest [Recovering/Resolving]
  - Hypoxia [Recovering/Resolving]
  - Impaired healing [Unknown]
  - Haemodynamic instability [Unknown]
